FAERS Safety Report 4559620-6 (Version None)
Quarter: 2005Q1

REPORT INFORMATION
  Report Type: 
  Country: None (occurrence: None)
  Receive Date: 20050113
  Receipt Date: 20040929
  Transmission Date: 20050727
  Serious: Yes (Hospitalization)
  Sender: FDA-Public Use
  Company Number: 381915

PATIENT
  Age: 47 Year
  Sex: Male

DRUGS (1)
  1. FUZEON [Suspect]

REACTIONS (1)
  - PNEUMONIA BACTERIAL [None]
